FAERS Safety Report 20450911 (Version 2)
Quarter: 2025Q4

REPORT INFORMATION
  Report Type: Spontaneous
  Country: GB (occurrence: GB)
  Receive Date: 20220209
  Receipt Date: 20251214
  Transmission Date: 20260117
  Serious: Yes (Hospitalization, Other)
  Sender: INSUD PHARMA
  Company Number: None

PATIENT
  Age: 65 Year
  Sex: Female

DRUGS (1)
  1. LANSOPRAZOLE [Suspect]
     Active Substance: LANSOPRAZOLE
     Indication: Dyspepsia
     Dosage: UNK
     Route: 065

REACTIONS (1)
  - Rapid eye movement sleep behaviour disorder [Unknown]
